FAERS Safety Report 15147053 (Version 1)
Quarter: 2018Q3

REPORT INFORMATION
  Report Type: Report from Study
  Country: US (occurrence: US)
  Receive Date: 20180716
  Receipt Date: 20180716
  Transmission Date: 20181010
  Serious: No
  Sender: FDA-Public Use
  Company Number: PHEH2018US028265

PATIENT
  Age: 8 Year
  Sex: Female

DRUGS (2)
  1. OMNITROPE [Suspect]
     Active Substance: SOMATROPIN
     Indication: BODY HEIGHT BELOW NORMAL
     Dosage: 0.8 MG, QD
     Route: 058
     Dates: start: 20180702
  2. OMNITROPE [Suspect]
     Active Substance: SOMATROPIN
     Indication: GROWTH FAILURE

REACTIONS (2)
  - Device leakage [Unknown]
  - Injection site extravasation [Unknown]

NARRATIVE: CASE EVENT DATE: 20180703
